FAERS Safety Report 15683650 (Version 2)
Quarter: 2019Q1

REPORT INFORMATION
  Report Type: Spontaneous
  Country: AU (occurrence: AU)
  Receive Date: 20181204
  Receipt Date: 20190116
  Transmission Date: 20190417
  Serious: Yes (Hospitalization, Other)
  Sender: FDA-Public Use
  Company Number: AU-GW PHARMA-201808AUGW0283

PATIENT

DRUGS (10)
  1. VIMPAT [Concomitant]
     Active Substance: LACOSAMIDE
     Indication: EPILEPSY
     Dosage: 100 MILLIGRAM, BID
     Route: 065
  2. INOVELON [Concomitant]
     Active Substance: RUFINAMIDE
     Indication: MUSCLE SPASMS
     Dosage: 480 MILLIGRAM, BID
     Route: 065
  3. MIDAZOLAM [Concomitant]
     Active Substance: MIDAZOLAM HYDROCHLORIDE
     Indication: SEIZURE
     Dosage: 10MG FOR SEIZURES LONGER THAN 10MINS, REPEAT AFTER 5 MINS IF NOT SETTLING FOR MORE THAN 1 SEIZURE IN
     Route: 002
  4. LAMICTAL [Concomitant]
     Active Substance: LAMOTRIGINE
     Indication: EPILEPSY
     Dosage: 175 MILLIGRAM, BID
     Route: 065
  5. NUROFEN FOR CHILDREN [Concomitant]
     Indication: PYREXIA
     Dosage: PRN
     Route: 065
  6. MOVICOL [Concomitant]
     Active Substance: POLYETHYLENE GLYCOL 3350\POTASSIUM CHLORIDE\SODIUM BICARBONATE\SODIUM CHLORIDE
     Indication: CONSTIPATION
     Dosage: 13.8 GRAM, ONCE EACH DAY PRN, DISSOLVED IN 125ML OF WATER
     Route: 065
  7. PANADOL [Concomitant]
     Active Substance: ACETAMINOPHEN
     Indication: PYREXIA
     Dosage: PRN
     Route: 065
  8. EPIDIOLEX [Suspect]
     Active Substance: CANNABIDIOL
     Indication: EPILEPSY
     Dosage: 16.6 MG/KG, 300 MILLIGRAM, BID
     Dates: start: 20170908
  9. FRISIUM [Concomitant]
     Active Substance: CLOBAZAM
     Indication: SEIZURE
     Dosage: 10 MILLIGRAM, TID
     Route: 065
  10. ZONEGRAN [Concomitant]
     Active Substance: ZONISAMIDE
     Indication: SEIZURE
     Dosage: 150 MILLIGRAM, BID
     Route: 065

REACTIONS (2)
  - Seizure [Recovered/Resolved]
  - Viral upper respiratory tract infection [Recovered/Resolved]

NARRATIVE: CASE EVENT DATE: 20180802
